FAERS Safety Report 17790110 (Version 1)
Quarter: 2020Q2

REPORT INFORMATION
  Report Type: Spontaneous
  Country: JP (occurrence: JP)
  Receive Date: 20200515
  Receipt Date: 20200515
  Transmission Date: 20200714
  Serious: Yes (Other)
  Sender: FDA-Public Use
  Company Number: JP-GLAXOSMITHKLINE-JP2020081161

PATIENT
  Age: 69 Year
  Sex: Male

DRUGS (3)
  1. ALLERMIST [Suspect]
     Active Substance: FLUTICASONE FUROATE
     Indication: RHINITIS ALLERGIC
     Dosage: UNK UNK, QD (2 SPRAYS IN EACH NOSTRIL, ONCE DAILY IN THE MORNING)
     Route: 045
     Dates: start: 2018
  2. ALLERMIST [Suspect]
     Active Substance: FLUTICASONE FUROATE
     Indication: SNEEZING
  3. ALLERMIST [Suspect]
     Active Substance: FLUTICASONE FUROATE
     Indication: NASAL CONGESTION

REACTIONS (4)
  - Cough [Recovering/Resolving]
  - Laryngeal discomfort [Not Recovered/Not Resolved]
  - Nasal abscess [Recovering/Resolving]
  - Dysphonia [Not Recovered/Not Resolved]

NARRATIVE: CASE EVENT DATE: 2020
